FAERS Safety Report 8302081-1 (Version None)
Quarter: 2012Q2

REPORT INFORMATION
  Report Type: 
  Country: None (occurrence: None)
  Receive Date: 20120420
  Receipt Date: 20120413
  Transmission Date: 20120825
  Serious: Yes (Other)
  Sender: FDA-Public Use
  Company Number: GB-MERCK-1007GBR00039

PATIENT
  Age: 34 Year
  Sex: Female

DRUGS (6)
  1. LAMIVUDINE [Concomitant]
     Route: 065
     Dates: start: 20090101, end: 20100610
  2. NEVIRAPINE [Concomitant]
     Route: 065
     Dates: start: 20090101, end: 20100610
  3. LOPINAVIR AND RITONAVIR [Concomitant]
     Route: 065
     Dates: start: 20100610
  4. ISENTRESS [Suspect]
     Indication: HIV INFECTION
     Route: 048
     Dates: start: 20100610
  5. TENOFOVIR [Concomitant]
     Route: 065
     Dates: start: 20100610
  6. ZIDOVUDINE [Concomitant]
     Route: 065
     Dates: start: 20090101, end: 20100610

REACTIONS (3)
  - ADVERSE EVENT [None]
  - MATERNAL EXPOSURE TIMING UNSPECIFIED [None]
  - CAESAREAN SECTION [None]
